FAERS Safety Report 4985369-1 (Version None)
Quarter: 2006Q1

REPORT INFORMATION
  Report Type: 
  Country: None (occurrence: None)
  Receive Date: 20060309
  Receipt Date: 20050706
  Transmission Date: 20060701
  Serious: Yes (Other)
  Sender: FDA-Public Use
  Company Number: 410135

PATIENT
  Sex: Male
  Weight: 3.7 kg

DRUGS (5)
  1. ACCUTANE [Suspect]
     Indication: ACNE CYSTIC
     Dosage: 40 MG 2PER DAY
     Dates: start: 19871221
  2. ORAL CONTRACEPTIVE PILL (ORAL CONTRACEPTIVE NOS) [Concomitant]
  3. GENERIC UNKNOWN (GENERIC UNKNOWN) [Concomitant]
  4. PERGONAL (MENOTROPINS) [Concomitant]
  5. PRENATAL VITAMINS (MINERALS NOS/MULTIVITAMIN NOS) [Concomitant]

REACTIONS (1)
  - ANTEPARTUM HAEMORRHAGE [None]
